FAERS Safety Report 6631093-9 (Version None)
Quarter: 2010Q1

REPORT INFORMATION
  Report Type: 
  Country: None (occurrence: None)
  Receive Date: 20100309
  Receipt Date: 20100222
  Transmission Date: 20100710
  Serious: Yes (Hospitalization)
  Sender: FDA-Public Use
  Company Number: AMAG201000126

PATIENT
  Age: 71 Year
  Sex: Female
  Weight: 44 kg

DRUGS (13)
  1. FERAHEME [Suspect]
     Indication: IRON DEFICIENCY ANAEMIA
     Dosage: 5.0 ML, (150 MG) SINGLE, INTRAVENOUS
     Route: 042
     Dates: start: 20100219, end: 20100219
  2. PROZAC [Concomitant]
  3. DIOVAN [Concomitant]
  4. VENTOLIN (BECLOMETASONE DIPROPIONATE, SALBUTAMOL) [Concomitant]
  5. PRAVASTATIN [Concomitant]
  6. ADVAIR DISKUS 100/50 [Concomitant]
  7. ALPRAZOLAM [Concomitant]
  8. CYANOCOBALAMIN [Concomitant]
  9. FERROUS SULFATE TAB [Concomitant]
  10. OMEPRAZOLE [Concomitant]
  11. VITAMIN D [Concomitant]
  12. COMBIVENT [Concomitant]
  13. OXYGEN (OXYGEN) [Concomitant]

REACTIONS (7)
  - ACUTE RESPIRATORY FAILURE [None]
  - BLOOD PRESSURE SYSTOLIC INCREASED [None]
  - HAEMOGLOBIN DECREASED [None]
  - MALAISE [None]
  - NAUSEA [None]
  - UNRESPONSIVE TO STIMULI [None]
  - WHEEZING [None]
